FAERS Safety Report 5695417-1 (Version None)
Quarter: 2008Q2

REPORT INFORMATION
  Report Type: 
  Country: None (occurrence: None)
  Receive Date: 20080403
  Receipt Date: 20080320
  Transmission Date: 20081010
  Serious: Yes (Other)
  Sender: FDA-Public Use
  Company Number: 230078M08USA

PATIENT
  Age: 55 Year
  Sex: Female

DRUGS (4)
  1. REBIF [Suspect]
     Indication: MULTIPLE SCLEROSIS
     Dosage: 44 MCG, 3 IN 1 WEEKS, SUBCUTANEOUS
     Route: 058
     Dates: start: 20040226, end: 20070917
  2. ASPIRIN (ACETYLYSALICYLIC ACID) [Concomitant]
  3. XANAX [Concomitant]
  4. TENORMIN [Concomitant]

REACTIONS (10)
  - ANTIPHOSPHOLIPID ANTIBODIES POSITIVE [None]
  - BLOOD UREA INCREASED [None]
  - COAGULOPATHY [None]
  - FACTOR V LEIDEN MUTATION [None]
  - FATIGUE [None]
  - HYPOAESTHESIA [None]
  - MUSCULAR WEAKNESS [None]
  - PAIN [None]
  - RETINAL EXUDATES [None]
  - WHITE BLOOD CELL COUNT DECREASED [None]
